FAERS Safety Report 22160696 (Version 1)
Quarter: 2023Q1

REPORT INFORMATION
  Report Type: Spontaneous
  Country: PE (occurrence: PE)
  Receive Date: 20230331
  Receipt Date: 20230331
  Transmission Date: 20230417
  Serious: Yes (Hospitalization, Other)
  Sender: FDA-Public Use
  Company Number: PE-009507513-2303PER000643

PATIENT
  Age: 57 Year
  Sex: Male
  Weight: 54 kg

DRUGS (2)
  1. EMEND [Suspect]
     Active Substance: APREPITANT
     Indication: Prophylaxis of nausea and vomiting
     Dosage: 125 MG
     Route: 048
     Dates: start: 20230223, end: 20230223
  2. EMEND [Suspect]
     Active Substance: APREPITANT
     Dosage: 80 MG
     Route: 048
     Dates: start: 20230224, end: 20230224

REACTIONS (7)
  - Blood pressure decreased [Recovered/Resolved]
  - Haemoglobin decreased [Recovered/Resolved]
  - Depressed mood [Recovered/Resolved]
  - Asthenia [Recovered/Resolved]
  - Fatigue [Recovered/Resolved]
  - Nausea [Recovered/Resolved]
  - General physical health deterioration [Recovered/Resolved]

NARRATIVE: CASE EVENT DATE: 20230223
